FAERS Safety Report 14974148 (Version 1)
Quarter: 2018Q2

REPORT INFORMATION
  Report Type: Spontaneous
  Country: US (occurrence: US)
  Receive Date: 20180605
  Receipt Date: 20180605
  Transmission Date: 20180711
  Serious: Yes (Hospitalization)
  Sender: FDA-Public Use
  Company Number: US-UNITED THERAPEUTICS-UNT-2018-007794

PATIENT
  Age: 70 Year
  Sex: Male
  Weight: 90.7 kg

DRUGS (2)
  1. REMODULIN [Suspect]
     Active Substance: TREPROSTINIL
     Indication: PULMONARY ARTERIAL HYPERTENSION
     Dosage: 0.081 ?G/KG, CONTINUING
     Route: 058
     Dates: start: 20121019
  2. REMODULIN [Suspect]
     Active Substance: TREPROSTINIL
     Indication: PULMONARY HYPERTENSION

REACTIONS (5)
  - Dyspnoea [Unknown]
  - Chest pain [Unknown]
  - Hypoaesthesia [Unknown]
  - Dizziness [Unknown]
  - Melaena [Unknown]

NARRATIVE: CASE EVENT DATE: 20180529
